FAERS Safety Report 6940200-X (Version None)
Quarter: 2010Q3

REPORT INFORMATION
  Report Type: 
  Country: None (occurrence: None)
  Receive Date: 20100825
  Receipt Date: 20100817
  Transmission Date: 20110219
  Serious: Yes (Other)
  Sender: FDA-Public Use
  Company Number: US-SANOFI-AVENTIS-2009SA003218

PATIENT
  Age: 65 Year
  Sex: Male
  Weight: 73.47 kg

DRUGS (5)
  1. PLAVIX [Suspect]
     Route: 048
     Dates: start: 20080101
  2. SIMVASTATIN [Suspect]
     Route: 065
  3. METOPROLOL [Suspect]
     Route: 065
  4. MULTI-VITAMINS [Concomitant]
  5. CALCIUM [Concomitant]

REACTIONS (9)
  - ABDOMINAL DISTENSION [None]
  - CONTUSION [None]
  - DIARRHOEA [None]
  - DYSPEPSIA [None]
  - FISTULA [None]
  - FLATULENCE [None]
  - RASH [None]
  - RECTAL ABSCESS [None]
  - URTICARIA [None]
